FAERS Safety Report 7776008-5 (Version None)
Quarter: 2011Q3

REPORT INFORMATION
  Report Type: 
  Country: None (occurrence: None)
  Receive Date: 20110923
  Receipt Date: 20110916
  Transmission Date: 20111222
  Serious: Yes (Other)
  Sender: FDA-Public Use
  Company Number: US-ASTRAZENECA-2010SE39391

PATIENT
  Age: 57 Year
  Sex: Female

DRUGS (2)
  1. NEXIUM [Suspect]
     Route: 048
  2. PREVACID [Suspect]
     Route: 065

REACTIONS (8)
  - GOUT [None]
  - LUNG NEOPLASM MALIGNANT [None]
  - BLOOD CALCIUM DECREASED [None]
  - POLYARTHRITIS [None]
  - DRUG DOSE OMISSION [None]
  - LIVER DISORDER [None]
  - BLOOD POTASSIUM DECREASED [None]
  - DIARRHOEA [None]
